FAERS Safety Report 8391089-6 (Version None)
Quarter: 2012Q2

REPORT INFORMATION
  Report Type: 
  Country: None (occurrence: None)
  Receive Date: 20120529
  Receipt Date: 20120525
  Transmission Date: 20120825
  Serious: Yes (Other)
  Sender: FDA-Public Use
  Company Number: PHHY2012MX045540

PATIENT
  Sex: Female

DRUGS (7)
  1. ASPIRIN [Concomitant]
     Dosage: 1 DF, DAILY
     Dates: start: 20111115
  2. SENOKOT [Concomitant]
     Dosage: 1 DF, DAILY
     Dates: start: 20111115
  3. HYDROCHLOROTHIAZIDE [Concomitant]
     Dosage: 1 DF, ON MONDAY, WEDNESDAY AND FRIDAY
     Dates: start: 20111125
  4. EXFORGE [Suspect]
     Dosage: 2 TABLETS (160/5 MG) DAILY
  5. CITALOPRAM [Concomitant]
     Dosage: 1 DF, DAILY
     Dates: start: 20111115
  6. EXFORGE [Suspect]
     Indication: HYPERTENSION
     Dosage: 1 TABLET (160/5 MG) DAILY
     Dates: start: 20110831
  7. CRESTOR [Concomitant]
     Dosage: 1 DF, DAILY
     Dates: start: 20111115

REACTIONS (4)
  - ASTHMA [None]
  - COUGH [None]
  - BLOOD PRESSURE ABNORMAL [None]
  - INCREASED UPPER AIRWAY SECRETION [None]
